FAERS Safety Report 10023766 (Version 1)
Quarter: 2014Q1

REPORT INFORMATION
  Report Type: Spontaneous
  Country: US (occurrence: None)
  Receive Date: 20140304
  Receipt Date: 20140304
  Transmission Date: 20141002
  Serious: Yes (Hospitalization, Other)
  Sender: FDA-Public Use
  Company Number: RB-59130-2013

PATIENT
  Age: 45 Year
  Sex: Female

DRUGS (1)
  1. SUBOXONE [Suspect]
     Indication: PRODUCT USED FOR UNKNOWN INDICATION
     Dosage: DOSING  DETAILS UNKNOWN

REACTIONS (4)
  - Hypersensitivity [None]
  - Hepatic failure [None]
  - Pyrexia [None]
  - Pain [None]
